FAERS Safety Report 22254856 (Version 1)
Quarter: 2023Q2

REPORT INFORMATION
  Report Type: Spontaneous
  Country: SE (occurrence: None)
  Receive Date: 20230426
  Receipt Date: 20230426
  Transmission Date: 20230721
  Serious: Yes (Hospitalization, Disabling)
  Sender: FDA-Public Use
  Company Number: SE-ROCHE-3338605

PATIENT
  Age: 13 Year
  Sex: Female
  Weight: 35 kg

DRUGS (3)
  1. CLONAZEPAM [Suspect]
     Active Substance: CLONAZEPAM
     Indication: Cataplexy
     Route: 048
     Dates: start: 20151101, end: 2019
  2. CHOLECALCIFEROL [Concomitant]
     Active Substance: CHOLECALCIFEROL
     Route: 048
  3. LAMOTRIGINE [Concomitant]
     Active Substance: LAMOTRIGINE
     Route: 048

REACTIONS (5)
  - Catatonia [Not Recovered/Not Resolved]
  - Mutism [Not Recovered/Not Resolved]
  - Mental disorder [Recovered/Resolved with Sequelae]
  - Personality change [Not Recovered/Not Resolved]
  - Product use in unapproved indication [Unknown]

NARRATIVE: CASE EVENT DATE: 20151101
